FAERS Safety Report 9295501 (Version 1)
Quarter: 2013Q1

REPORT INFORMATION
  Report Type: Spontaneous
  Country: US (occurrence: None)
  Receive Date: 20121227
  Receipt Date: 20121227
  Transmission Date: 20140127
  Serious: No
  Sender: FDA-Public Use
  Company Number: PHEH2012US020951

PATIENT
  Age: 61 Year
  Sex: Female

DRUGS (2)
  1. AFINITOR [Suspect]
     Route: 048
     Dates: start: 201209
  2. EXEMESTANE (EXEMESTANE) [Concomitant]

REACTIONS (11)
  - Rash [None]
  - Hypoaesthesia [None]
  - Pain in extremity [None]
  - Chest pain [None]
  - Abdominal pain [None]
  - Heart rate increased [None]
  - Tremor [None]
  - Protein urine [None]
  - Spondylitis [None]
  - Blood glucose increased [None]
  - Skin exfoliation [None]
